FAERS Safety Report 16963595 (Version 1)
Quarter: 2019Q4

REPORT INFORMATION
  Report Type: Spontaneous
  Country: DE (occurrence: DE)
  Receive Date: 20191025
  Receipt Date: 20191025
  Transmission Date: 20200122
  Serious: Yes (Other)
  Sender: FDA-Public Use
  Company Number: DE-AKCEA THERAPEUTICS-2019IS001743

PATIENT

DRUGS (2)
  1. TEGSEDI [Suspect]
     Active Substance: INOTERSEN SODIUM
     Indication: POLYNEUROPATHY
     Dosage: UNK, QW
  2. TEGSEDI [Suspect]
     Active Substance: INOTERSEN SODIUM
     Indication: FAMILIAL AMYLOIDOSIS
     Dosage: UNK, TWICE A WEEK

REACTIONS (7)
  - Pain in extremity [Unknown]
  - Thrombocytopenia [Unknown]
  - Glomerular filtration rate decreased [Unknown]
  - Paraesthesia [Unknown]
  - Off label use [Unknown]
  - Panic attack [Unknown]
  - Injection site reaction [Unknown]
